FAERS Safety Report 18394477 (Version 7)
Quarter: 2020Q4

REPORT INFORMATION
  Report Type: Report from Study
  Country: TR (occurrence: TR)
  Receive Date: 20201016
  Receipt Date: 20201120
  Transmission Date: 20210114
  Serious: Yes (Hospitalization)
  Sender: FDA-Public Use
  Company Number: TR-EISAI MEDICAL RESEARCH-EC-2020-082289

PATIENT
  Age: 63 Year
  Sex: Female
  Weight: 68.2 kg

DRUGS (13)
  1. PEMBROLIZUMAB. [Suspect]
     Active Substance: PEMBROLIZUMAB
     Indication: ENDOMETRIAL CANCER
     Route: 041
     Dates: start: 20200721, end: 20200902
  2. LENVATINIB [Suspect]
     Active Substance: LENVATINIB
     Indication: ENDOMETRIAL CANCER
     Dosage: STARTING DOSE AT 20 MG, FLUCTUATED DOSAGE
     Route: 048
     Dates: start: 20200721, end: 20201012
  3. LENVATINIB [Suspect]
     Active Substance: LENVATINIB
     Route: 048
     Dates: start: 20201013, end: 20201013
  4. JANUMET [Concomitant]
     Active Substance: METFORMIN HYDROCHLORIDE\SITAGLIPTIN PHOSPHATE
     Dates: start: 20200708, end: 20201016
  5. MOTILIUM [Concomitant]
     Active Substance: DOMPERIDONE
     Dates: start: 20200902, end: 20201013
  6. LANTUS [Concomitant]
     Active Substance: INSULIN GLARGINE
     Dates: start: 20200708, end: 20201014
  7. PEMBROLIZUMAB. [Suspect]
     Active Substance: PEMBROLIZUMAB
     Route: 041
     Dates: start: 20200921, end: 20200921
  8. NEXIUM [Concomitant]
     Active Substance: ESOMEPRAZOLE MAGNESIUM
     Dates: start: 20200902, end: 20201014
  9. DIAMICRON [Concomitant]
     Active Substance: GLICLAZIDE
     Dates: start: 20200708, end: 20201014
  10. PROGAS [Concomitant]
     Dates: start: 20201014, end: 20201014
  11. JARDIANCE [Concomitant]
     Active Substance: EMPAGLIFLOZIN
     Dates: start: 20200708, end: 20201014
  12. LEVOTIRON [Concomitant]
     Active Substance: LEVOTHYROXINE SODIUM
     Dates: start: 201506, end: 20201018
  13. PAROL [Concomitant]
     Active Substance: ACETAMINOPHEN
     Dates: start: 20200804, end: 20201013

REACTIONS (1)
  - Encephalopathy [Recovering/Resolving]

NARRATIVE: CASE EVENT DATE: 20201014
